FAERS Safety Report 6702015-7 (Version None)
Quarter: 2010Q2

REPORT INFORMATION
  Report Type: 
  Country: None (occurrence: None)
  Receive Date: 20100429
  Receipt Date: 20100421
  Transmission Date: 20101027
  Serious: Yes (Other)
  Sender: FDA-Public Use
  Company Number: DE-PFIZER INC-2010050090

PATIENT
  Age: 49 Year
  Sex: Female

DRUGS (4)
  1. ZELDOX [Suspect]
     Indication: ANXIETY DISORDER
     Dosage: UNK
     Route: 048
     Dates: start: 20060101, end: 20100301
  2. PROMETHAZIN ^NEURAXPHARM^ [Concomitant]
     Dosage: UNK
  3. LYRICA [Concomitant]
     Dosage: 150 MG, 2X/DAY
     Route: 048
     Dates: start: 20090401
  4. METOPROLOL [Concomitant]
     Dosage: UNK

REACTIONS (5)
  - EYE IRRITATION [None]
  - GAZE PALSY [None]
  - MUSCLE SPASMS [None]
  - MUSCULOSKELETAL PAIN [None]
  - SLEEP DISORDER [None]
